FAERS Safety Report 4980446-3 (Version None)
Quarter: 2006Q2

REPORT INFORMATION
  Report Type: 
  Country: None (occurrence: None)
  Receive Date: 20060424
  Receipt Date: 20060410
  Transmission Date: 20061013
  Serious: Yes (Other)
  Sender: FDA-Public Use
  Company Number: 200601350

PATIENT
  Age: 54 Year
  Sex: Male

DRUGS (8)
  1. TAGAMET [Suspect]
     Indication: GASTRIC ULCER
     Dosage: 200MG THREE TIMES PER DAY
     Route: 048
     Dates: start: 20040915, end: 20041007
  2. ITRIZOLE [Suspect]
     Indication: NAIL TINEA
     Dosage: 200MG TWICE PER DAY
     Route: 048
     Dates: start: 20040915, end: 20040922
  3. SOLON [Suspect]
     Indication: GASTRIC ULCER
     Dosage: 100MG THREE TIMES PER DAY
     Route: 048
     Dates: start: 20040915, end: 20041007
  4. ITRIZOLE [Concomitant]
     Route: 065
     Dates: start: 20040720, end: 20040824
  5. OMEPRAL [Concomitant]
     Route: 065
     Dates: start: 20040713, end: 20040914
  6. CLARITHROMYCIN [Concomitant]
     Route: 065
     Dates: start: 20040713, end: 20040720
  7. SAWACILLIN [Concomitant]
     Route: 065
     Dates: start: 20040713, end: 20040720
  8. BIOFERMIN-R [Concomitant]
     Route: 065
     Dates: start: 20040713, end: 20040720

REACTIONS (1)
  - HEPATITIS [None]
